FAERS Safety Report 7503797-7 (Version None)
Quarter: 2011Q2

REPORT INFORMATION
  Report Type: 
  Country: None (occurrence: None)
  Receive Date: 20110401
  Receipt Date: 20101004
  Transmission Date: 20111010
  Serious: Yes (Hospitalization)
  Sender: FDA-Public Use
  Company Number: 250645USA

PATIENT
  Sex: Male

DRUGS (1)
  1. CAPTOPRIL [Suspect]
     Dosage: (50 MG)

REACTIONS (2)
  - DYSPNOEA [None]
  - SWELLING FACE [None]
